FAERS Safety Report 4855105-8 (Version None)
Quarter: 2005Q4

REPORT INFORMATION
  Report Type: 
  Country: None (occurrence: None)
  Receive Date: 20051215
  Receipt Date: 20051205
  Transmission Date: 20060501
  Serious: Yes (Disabling)
  Sender: FDA-Public Use
  Company Number: DE-SANOFI-SYNTHELABO-A04200501065

PATIENT
  Sex: Male

DRUGS (1)
  1. PLAVIX [Suspect]
     Indication: VASCULAR BYPASS GRAFT
     Route: 048
     Dates: end: 20051001

REACTIONS (1)
  - HYPOACUSIS [None]
